FAERS Safety Report 5455286-1 (Version None)
Quarter: 2007Q3

REPORT INFORMATION
  Report Type: 
  Country: None (occurrence: None)
  Receive Date: 20070918
  Receipt Date: 20070912
  Transmission Date: 20080115
  Serious: Yes (Congenital Anomaly, Other)
  Sender: FDA-Public Use
  Company Number: PHBS1998AU30943

PATIENT

DRUGS (2)
  1. TEGRETOL [Suspect]
     Dosage: 200 MG, BID
     Route: 064
  2. TEGRETOL [Suspect]
     Dosage: 300 MG, BID
     Route: 064

REACTIONS (2)
  - DRUG EXPOSURE DURING PREGNANCY [None]
  - TRACHEO-OESOPHAGEAL FISTULA [None]
